FAERS Safety Report 5181061-1 (Version None)
Quarter: 2006Q4

REPORT INFORMATION
  Report Type: 
  Country: None (occurrence: None)
  Receive Date: 20061220
  Receipt Date: 20061208
  Transmission Date: 20070319
  Serious: Yes (Other)
  Sender: FDA-Public Use
  Company Number: PHMT2006CA02273

PATIENT
  Age: 26 Year
  Sex: Male

DRUGS (3)
  1. CLOZARIL [Suspect]
     Route: 048
     Dates: start: 20061103, end: 20061207
  2. HALDOL [Suspect]
     Dosage: 5 TABLETS IN 24 HOURS
  3. BENADRYL [Suspect]

REACTIONS (2)
  - PROSTATISM [None]
  - TREATMENT NONCOMPLIANCE [None]
